FAERS Safety Report 5211874-9 (Version None)
Quarter: 2007Q1

REPORT INFORMATION
  Report Type: 
  Country: None (occurrence: None)
  Receive Date: 20070116
  Receipt Date: 20070116
  Transmission Date: 20070707
  Serious: Yes (Hospitalization, Other)
  Sender: FDA-Public Use
  Company Number: None

PATIENT
  Sex: Male
  Weight: 93 kg

DRUGS (1)
  1. ENOXAPARIN SODIUM [Suspect]
     Indication: THERAPEUTIC PROCEDURE
     Dosage: 80MG  BID  SQ
     Dates: start: 20061005, end: 20061010

REACTIONS (3)
  - EPISTAXIS [None]
  - HAEMORRHAGE [None]
  - IMPLANT SITE HAEMATOMA [None]
